FAERS Safety Report 9595757 (Version 2)
Quarter: 2013Q4

REPORT INFORMATION
  Report Type: Spontaneous
  Country: SI (occurrence: SI)
  Receive Date: 20131004
  Receipt Date: 20131004
  Transmission Date: 20140711
  Serious: Yes (Hospitalization, Other)
  Sender: FDA-Public Use
  Company Number: PHHY2013SI095890

PATIENT
  Age: 55 Year
  Sex: Female

DRUGS (7)
  1. AFINITOR [Suspect]
     Indication: BREAST CANCER METASTATIC
     Dosage: 10 MG, DAILY
     Route: 048
     Dates: start: 20130718, end: 20130730
  2. AROMASIN [Concomitant]
     Indication: BREAST CANCER METASTATIC
     Dosage: 25 MG, DAILY
     Route: 048
     Dates: start: 20130718, end: 20130815
  3. NAKLOFEN DUO [Concomitant]
     Indication: BONE PAIN
     Dosage: 75 MG, BID
     Route: 048
     Dates: start: 20130725
  4. NEXIUM [Concomitant]
     Indication: GASTRITIS
     Dosage: 40 MG, DAILY
     Route: 048
     Dates: start: 20130725
  5. CODEINE PHOSPHATE [Concomitant]
     Indication: COUGH
     Dosage: 30 MG, TID
     Route: 048
     Dates: start: 201306
  6. LORAM [Concomitant]
     Indication: ANXIETY
     Dosage: 2.5 MG, DAILY
     Dates: start: 20130725, end: 20130815
  7. LORAM [Concomitant]
     Indication: INSOMNIA

REACTIONS (6)
  - Hyponatraemia [Recovered/Resolved]
  - Stomatitis [Recovered/Resolved]
  - C-reactive protein increased [Unknown]
  - Gamma-glutamyltransferase increased [Unknown]
  - Alanine aminotransferase increased [Unknown]
  - Haemoglobin decreased [Unknown]
